FAERS Safety Report 8225616-6 (Version None)
Quarter: 2012Q1

REPORT INFORMATION
  Report Type: 
  Country: None (occurrence: None)
  Receive Date: 20120321
  Receipt Date: 20120312
  Transmission Date: 20120608
  Serious: Yes (Life-Threatening)
  Sender: FDA-Public Use
  Company Number: CN-BRISTOL-MYERS SQUIBB COMPANY-16408700

PATIENT
  Age: 57 Year
  Sex: Male
  Weight: 62 kg

DRUGS (3)
  1. CETUXIMAB [Suspect]
     Indication: NON-SMALL CELL LUNG CANCER
     Dosage: 7NOV09-7NOV09=692MG,13NOV09-27NOV09=430MG,04DEC09-5FEB2010(400MG 1 IN 1 WEEK).
     Route: 041
     Dates: start: 20091107, end: 20100205
  2. VINORELBINE [Suspect]
     Indication: NON-SMALL CELL LUNG CANCER
     Dosage: 13NOV09-20NOV09,D1,8,04DEC- 34MG EVERY 3 WEEK D,1,8,30DEC09- 22MGEVERY 3WEEKS D,1,8
     Route: 042
     Dates: start: 20091113, end: 20100129
  3. CISPLATIN [Suspect]
     Indication: NON-SMALL CELL LUNG CANCER
     Dosage: 13NOV09-13NOV09,D1,4DEC09-4DEC09=108MG EVERY 3WEEK D1,30DEC09- 35 MG EVERY 3WEEKSD1,
     Route: 041
     Dates: start: 20091113, end: 20100122

REACTIONS (1)
  - NEUTROPENIA [None]
